FAERS Safety Report 6820160-2 (Version None)
Quarter: 2010Q3

REPORT INFORMATION
  Report Type: 
  Country: None (occurrence: None)
  Receive Date: 20100707
  Receipt Date: 20100702
  Transmission Date: 20110219
  Serious: Yes (Hospitalization)
  Sender: FDA-Public Use
  Company Number: US-MERCK-1006USA02174

PATIENT
  Age: 59 Year
  Sex: Female

DRUGS (7)
  1. JANUVIA [Suspect]
     Indication: TYPE 2 DIABETES MELLITUS
     Route: 048
     Dates: start: 20080101, end: 20100501
  2. LANTUS [Concomitant]
     Route: 065
  3. LOTREL [Concomitant]
     Indication: BLOOD PRESSURE
     Route: 065
  4. CLONIDINE [Concomitant]
     Route: 065
  5. CRESTOR [Concomitant]
     Route: 065
  6. NEXIUM [Concomitant]
     Route: 065
  7. AMLODIPINE [Concomitant]
     Indication: BLOOD PRESSURE
     Route: 065

REACTIONS (2)
  - PANCREATITIS RELAPSING [None]
  - URINARY TRACT INFECTION [None]
